FAERS Safety Report 12170438 (Version 1)
Quarter: 2016Q1

REPORT INFORMATION
  Report Type: Report from Study
  Country: US (occurrence: US)
  Receive Date: 20160311
  Receipt Date: 20160311
  Transmission Date: 20160526
  Serious: Yes (Death)
  Sender: FDA-Public Use
  Company Number: US-ROCHE-1707150

PATIENT
  Age: 64 Year
  Sex: Male

DRUGS (5)
  1. GLIPIZIDE. [Concomitant]
     Active Substance: GLIPIZIDE
  2. XANAX [Concomitant]
     Active Substance: ALPRAZOLAM
  3. ESBRIET [Suspect]
     Active Substance: PIRFENIDONE
     Indication: IDIOPATHIC PULMONARY FIBROSIS
     Dosage: 801 MG 3 TIMES A DAY
     Route: 048
     Dates: start: 20160206
  4. NORVASC [Concomitant]
     Active Substance: AMLODIPINE BESYLATE
  5. BENICAR [Concomitant]
     Active Substance: OLMESARTAN MEDOXOMIL

REACTIONS (3)
  - Hypertension [Unknown]
  - Death [Fatal]
  - Drug dose omission [Unknown]

NARRATIVE: CASE EVENT DATE: 20160302
